FAERS Safety Report 6344218-X (Version None)
Quarter: 2009Q3

REPORT INFORMATION
  Report Type: 
  Country: None (occurrence: None)
  Receive Date: 20090903
  Receipt Date: 20090903
  Transmission Date: 20100115
  Serious: Yes (Other)
  Sender: FDA-Public Use
  Company Number: None

PATIENT
  Age: 51 Year
  Sex: Female
  Weight: 63.9572 kg

DRUGS (1)
  1. VALTREX [Suspect]
     Indication: HERPES ZOSTER
     Dosage: ONE CAPLET 3 DAILY PO
     Route: 048
     Dates: start: 20090831, end: 20090907

REACTIONS (10)
  - BLISTER [None]
  - BURNING SENSATION [None]
  - HYPERAESTHESIA [None]
  - LIP SWELLING [None]
  - PARAESTHESIA ORAL [None]
  - PRURITUS [None]
  - RASH ERYTHEMATOUS [None]
  - RASH PUSTULAR [None]
  - SKIN EXFOLIATION [None]
  - SWELLING FACE [None]
